FAERS Safety Report 6603882-8 (Version None)
Quarter: 2010Q1

REPORT INFORMATION
  Report Type: 
  Country: None (occurrence: None)
  Receive Date: 20100226
  Receipt Date: 20090324
  Transmission Date: 20100710
  Serious: Yes (Other)
  Sender: FDA-Public Use
  Company Number: A0771544A

PATIENT
  Age: 24 Year
  Sex: Female
  Weight: 60 kg

DRUGS (1)
  1. LAMICTAL CD [Suspect]
     Indication: DRUG USE FOR UNKNOWN INDICATION
     Dosage: 400MG PER DAY
     Route: 048
     Dates: start: 20060601

REACTIONS (6)
  - BLISTER [None]
  - ERYTHEMA [None]
  - MUCOUS MEMBRANE DISORDER [None]
  - OEDEMA MOUTH [None]
  - ORAL PAIN [None]
  - STEVENS-JOHNSON SYNDROME [None]
